FAERS Safety Report 7334735-8 (Version None)
Quarter: 2011Q1

REPORT INFORMATION
  Report Type: 
  Country: None (occurrence: None)
  Receive Date: 20110307
  Receipt Date: 20110222
  Transmission Date: 20110831
  Serious: Yes (Hospitalization)
  Sender: FDA-Public Use
  Company Number: PHHY2011US15397

PATIENT
  Sex: Female

DRUGS (2)
  1. EXJADE [Suspect]
     Indication: ANAEMIA
     Dosage: 1250 MG, QD
     Route: 048
     Dates: start: 20101201
  2. EXJADE [Suspect]
     Indication: PHOSPHORUS METABOLISM DISORDER

REACTIONS (1)
  - MYOCARDIAL INFARCTION [None]
